FAERS Safety Report 13945063 (Version 2)
Quarter: 2017Q4

REPORT INFORMATION
  Report Type: Spontaneous
  Country: FR (occurrence: FR)
  Receive Date: 20170907
  Receipt Date: 20171018
  Transmission Date: 20180320
  Serious: Yes (Other)
  Sender: FDA-Public Use
  Company Number: FR-CONCORDIA PHARMACEUTICALS INC.-GSH201708-004993

PATIENT
  Age: 81 Year
  Sex: Male

DRUGS (4)
  1. ACEBUTOLOL [Concomitant]
     Active Substance: ACEBUTOLOL
  2. EXFORGE [Concomitant]
     Active Substance: AMLODIPINE BESYLATE\VALSARTAN
  3. ALFUZOSIN [Suspect]
     Active Substance: ALFUZOSIN
     Indication: PRODUCT USED FOR UNKNOWN INDICATION
     Route: 048
  4. URAPIDIL [Concomitant]
     Active Substance: URAPIDIL

REACTIONS (2)
  - Leukopenia [Unknown]
  - Thrombocytopenia [Unknown]
